FAERS Safety Report 5830767-7 (Version None)
Quarter: 2008Q3

REPORT INFORMATION
  Report Type: 
  Country: None (occurrence: None)
  Receive Date: 20080801
  Receipt Date: 20071114
  Transmission Date: 20090109
  Serious: No
  Sender: FDA-Public Use
  Company Number: US-BRISTOL-MYERS SQUIBB COMPANY-13982798

PATIENT
  Sex: Female
  Weight: 84 kg

DRUGS (6)
  1. WARFARIN SODIUM [Suspect]
     Indication: CEREBROVASCULAR ACCIDENT PROPHYLAXIS
     Dosage: DOSE REDUCED TO 2.5MG.
     Route: 048
  2. CALAN [Concomitant]
  3. TOPROL-XL [Concomitant]
  4. COSOPT [Concomitant]
  5. PILOCARPINE [Concomitant]
  6. TRAVATAN [Concomitant]

REACTIONS (1)
  - PROTHROMBIN TIME PROLONGED [None]
